FAERS Safety Report 6177273-0 (Version None)
Quarter: 2009Q2

REPORT INFORMATION
  Report Type: 
  Country: None (occurrence: None)
  Receive Date: 20090504
  Receipt Date: 20090427
  Transmission Date: 20091009
  Serious: Yes (Hospitalization)
  Sender: FDA-Public Use
  Company Number: US-ASTRAZENECA-2009UW10514

PATIENT
  Age: 67 Year
  Sex: Male
  Weight: 79.4 kg

DRUGS (4)
  1. TOPROL-XL [Suspect]
     Indication: HEART RATE ABNORMAL
     Route: 048
     Dates: start: 20030101
  2. BENICAR [Concomitant]
     Route: 048
  3. PLAVIX [Concomitant]
     Route: 048
  4. PRAVASTATIN [Concomitant]
     Route: 048

REACTIONS (2)
  - CAROTID ARTERY OCCLUSION [None]
  - HEART RATE DECREASED [None]
